FAERS Safety Report 5484270-7 (Version None)
Quarter: 2007Q4

REPORT INFORMATION
  Report Type: 
  Country: None (occurrence: None)
  Receive Date: 20071010
  Receipt Date: 20070925
  Transmission Date: 20080405
  Serious: Yes (Death)
  Sender: FDA-Public Use
  Company Number: 2007001544

PATIENT
  Age: 55 Year
  Sex: Male
  Weight: 64.8644 kg

DRUGS (11)
  1. ERLOTINIB (TABLET) [Suspect]
     Indication: GLIOBLASTOMA MULTIFORME
     Dosage: 150 MG (150 MG, QD), ORAL, 150 MG (200 MG, QD), ORAL
     Route: 048
     Dates: start: 20070615, end: 20070701
  2. ERLOTINIB (TABLET) [Suspect]
     Indication: GLIOBLASTOMA MULTIFORME
     Dosage: 150 MG (150 MG, QD), ORAL, 150 MG (200 MG, QD), ORAL
     Route: 048
     Dates: start: 20070702, end: 20070704
  3. ERLOTINIB (TABLET) [Suspect]
  4. INSULIN [Concomitant]
  5. DECADRON [Concomitant]
  6. KEPPRA [Concomitant]
  7. HYDROCHLOROTHIAZIDE [Concomitant]
  8. FELODIPINE [Concomitant]
  9. GABAPENTIN [Concomitant]
  10. PROVIGIL [Concomitant]
  11. ATENOLOL [Concomitant]

REACTIONS (8)
  - CARDIOPULMONARY FAILURE [None]
  - CONFUSIONAL STATE [None]
  - GENERAL PHYSICAL HEALTH DETERIORATION [None]
  - GLIOBLASTOMA MULTIFORME [None]
  - HEMIPARESIS [None]
  - MALIGNANT NEOPLASM PROGRESSION [None]
  - SOMNOLENCE [None]
  - VISUAL ACUITY REDUCED [None]
